FAERS Safety Report 14116482 (Version 1)
Quarter: 2017Q4

REPORT INFORMATION
  Report Type: Spontaneous
  Country: US (occurrence: US)
  Receive Date: 20171023
  Receipt Date: 20171023
  Transmission Date: 20180321
  Serious: Yes (Other)
  Sender: FDA-Public Use
  Company Number: US-PURDUE PHARMA-USA-2017-0139461

PATIENT
  Sex: Male

DRUGS (5)
  1. OXYCODONE HYDROCHLORIDE (SIMILAR TO NDA 22-272) [Suspect]
     Active Substance: OXYCODONE HYDROCHLORIDE
     Indication: BACK INJURY
     Dosage: 4-5 DF, DAILY
     Route: 048
  2. OXYCONTIN [Suspect]
     Active Substance: OXYCODONE HYDROCHLORIDE
     Indication: DRUG USE DISORDER
     Dosage: UNK
     Route: 048
  3. VICODIN [Suspect]
     Active Substance: ACETAMINOPHEN\HYDROCODONE BITARTRATE
     Indication: BACK INJURY
     Dosage: 4-5 DF, DAILY
     Route: 065
  4. HEROIN [Suspect]
     Active Substance: DIAMORPHINE
     Indication: DRUG USE DISORDER
     Dosage: UNK
     Route: 042
  5. HEROIN [Suspect]
     Active Substance: DIAMORPHINE
     Dosage: UNK

REACTIONS (3)
  - Substance dependence [Recovering/Resolving]
  - Substance abuse [Recovering/Resolving]
  - Euphoric mood [Unknown]
